FAERS Safety Report 8429172-9 (Version None)
Quarter: 2012Q2

REPORT INFORMATION
  Report Type: 
  Country: None (occurrence: None)
  Receive Date: 20120612
  Receipt Date: 20120531
  Transmission Date: 20120825
  Serious: Yes (Hospitalization)
  Sender: FDA-Public Use
  Company Number: US-BRISTOL-MYERS SQUIBB COMPANY-16448748

PATIENT
  Age: 62 Year
  Sex: Male
  Weight: 89 kg

DRUGS (5)
  1. PREDNISONE [Concomitant]
  2. IPILIMUMAB [Suspect]
     Indication: MALIGNANT MELANOMA
     Dosage: LAST DOSE 27DEC11
     Route: 042
     Dates: start: 20111205, end: 20111227
  3. LORAZEPAM [Concomitant]
  4. MECLIZINE [Concomitant]
  5. AZITHROMYCIN [Concomitant]

REACTIONS (10)
  - VESTIBULAR DISORDER [None]
  - MALIGNANT MELANOMA [None]
  - VIRAL LABYRINTHITIS [None]
  - VERTIGO [None]
  - VOMITING [None]
  - PNEUMONITIS [None]
  - DEAFNESS [None]
  - TREATMENT NONCOMPLIANCE [None]
  - NAUSEA [None]
  - NYSTAGMUS [None]
